FAERS Safety Report 16728390 (Version 1)
Quarter: 2019Q3

REPORT INFORMATION
  Report Type: Report from Study
  Country: CA (occurrence: CA)
  Receive Date: 20190822
  Receipt Date: 20190822
  Transmission Date: 20191005
  Serious: Yes (Hospitalization, Other)
  Sender: FDA-Public Use
  Company Number: CA-REGENERON PHARMACEUTICALS, INC.-2019-43996

PATIENT

DRUGS (4)
  1. CEMIPLIMAB [Suspect]
     Active Substance: CEMIPLIMAB
     Indication: METASTATIC SQUAMOUS CELL CARCINOMA
     Dosage: UNK, QCY
     Route: 042
     Dates: start: 20190703, end: 20190703
  2. CEMIPLIMAB [Suspect]
     Active Substance: CEMIPLIMAB
     Dosage: UNK, QCY
     Route: 042
     Dates: start: 20190619, end: 20190619
  3. CEMIPLIMAB [Suspect]
     Active Substance: CEMIPLIMAB
     Dosage: UNK, QCY
     Route: 042
     Dates: start: 20190605, end: 20190605
  4. CEMIPLIMAB [Suspect]
     Active Substance: CEMIPLIMAB
     Dosage: UNK, QCY
     Route: 042
     Dates: start: 20190522, end: 20190522

REACTIONS (4)
  - Therapy cessation [Not Recovered/Not Resolved]
  - Infection [Not Recovered/Not Resolved]
  - Hospitalisation [Not Recovered/Not Resolved]
  - Haemorrhage [Unknown]

NARRATIVE: CASE EVENT DATE: 20190717
